FAERS Safety Report 9869249 (Version 2)
Quarter: 2014Q1

REPORT INFORMATION
  Report Type: Spontaneous
  Country: TR (occurrence: TR)
  Receive Date: 20140205
  Receipt Date: 20140227
  Transmission Date: 20141002
  Serious: Yes (Hospitalization)
  Sender: FDA-Public Use
  Company Number: PHHY2014TR012353

PATIENT
  Age: 34 Year
  Sex: Female
  Weight: 65 kg

DRUGS (1)
  1. SEBIVO [Suspect]
     Dosage: 600 MG, DAILY
     Route: 048
     Dates: start: 20130814, end: 20131120

REACTIONS (3)
  - Xeroderma [Recovering/Resolving]
  - Vasculitis [Unknown]
  - Hyperkeratosis [Unknown]
